FAERS Safety Report 9015072 (Version 1)
Quarter: 2013Q1

REPORT INFORMATION
  Report Type: Spontaneous
  Country: US (occurrence: US)
  Receive Date: 20130116
  Receipt Date: 20130116
  Transmission Date: 20140127
  Serious: No
  Sender: FDA-Public Use
  Company Number: US-BIOGENIDEC-2013BI002507

PATIENT
  Age: 69 Year
  Sex: Male

DRUGS (1)
  1. AVONEX [Suspect]
     Indication: MULTIPLE SCLEROSIS
     Route: 030
     Dates: start: 20020730, end: 20121129

REACTIONS (3)
  - Toxicity to various agents [Recovered/Resolved]
  - Restlessness [Not Recovered/Not Resolved]
  - Speech disorder [Not Recovered/Not Resolved]
